FAERS Safety Report 18431179 (Version 3)
Quarter: 2020Q4

REPORT INFORMATION
  Report Type: Spontaneous
  Country: DE (occurrence: DE)
  Receive Date: 20201027
  Receipt Date: 20201208
  Transmission Date: 20210114
  Serious: Yes (Hospitalization)
  Sender: FDA-Public Use
  Company Number: NVSC2020DE284913

PATIENT
  Age: 64 Year
  Sex: Male
  Weight: 67 kg

DRUGS (11)
  1. PACLITAXEL. [Suspect]
     Active Substance: PACLITAXEL
     Indication: NON-SMALL CELL LUNG CANCER
     Dosage: 324 MG/M2 (ON 29/SEP/2020, LAST DOSE TAKEN PRIOR TO EVENT)
     Route: 042
     Dates: start: 20200928
  2. TAVEGIL [Concomitant]
     Active Substance: CLEMASTINE FUMARATE
     Indication: PRODUCT USED FOR UNKNOWN INDICATION
     Dosage: 2 MG
     Route: 042
     Dates: start: 20200928
  3. DEXAMETHASONE. [Concomitant]
     Active Substance: DEXAMETHASONE
     Indication: PRODUCT USED FOR UNKNOWN INDICATION
     Dosage: 20 MG
     Route: 042
     Dates: start: 20200929
  4. CARBOPLATIN. [Suspect]
     Active Substance: CARBOPLATIN
     Indication: NON-SMALL CELL LUNG CANCER
     Dosage: UNK (520 MG/MIN*ML ON 29/SEP/2020, LAST DOSE TAKEN PRIOR TO EVENT ON 20/OCT/2020,
     Route: 042
     Dates: start: 20200928
  5. APREPITANT. [Concomitant]
     Active Substance: APREPITANT
     Indication: PRODUCT USED FOR UNKNOWN INDICATION
     Dosage: 125.8 MG
     Route: 048
     Dates: start: 20201005
  6. DECODERM [Concomitant]
     Active Substance: FLUPREDNIDENE ACETATE
     Indication: PRODUCT USED FOR UNKNOWN INDICATION
     Dosage: UNK
     Route: 062
     Dates: start: 20201005
  7. GRANISETRON [Concomitant]
     Active Substance: GRANISETRON
     Indication: PRODUCT USED FOR UNKNOWN INDICATION
     Dosage: 1 MG
     Route: 042
     Dates: start: 20201005
  8. BEVACIZUMAB. [Suspect]
     Active Substance: BEVACIZUMAB
     Indication: NON-SMALL CELL LUNG CANCER
     Dosage: ON 28/SEP/2020, LAST DOSE TAKEN PRIOR TO EVENT. ON 19/OCT/2020, HE RECEIVED THE MOST RECENT DOSE OF
     Route: 042
     Dates: start: 20200928
  9. RIZATRIPTAN. [Concomitant]
     Active Substance: RIZATRIPTAN
     Indication: PRODUCT USED FOR UNKNOWN INDICATION
     Dosage: 10 MG
     Route: 048
     Dates: start: 20201005
  10. ATEZOLIZUMAB. [Suspect]
     Active Substance: ATEZOLIZUMAB
     Indication: NON-SMALL CELL LUNG CANCER
     Dosage: ON 28/SEP/2020, LAST DOSE TAKEN PRIOR TO EVENT. ON 19/OCT/2020, HE RECEIVED THE MOST RECENT DOSE OF
     Route: 042
     Dates: start: 20200928
  11. PALONOSETRON. [Concomitant]
     Active Substance: PALONOSETRON HYDROCHLORIDE
     Indication: PRODUCT USED FOR UNKNOWN INDICATION
     Dosage: 250 MICROGRAM/5ML
     Route: 042
     Dates: start: 20200929

REACTIONS (4)
  - Fatigue [Not Recovered/Not Resolved]
  - Migraine [Unknown]
  - Anal abscess [Unknown]
  - Headache [Not Recovered/Not Resolved]

NARRATIVE: CASE EVENT DATE: 20200929
